FAERS Safety Report 18116147 (Version 1)
Quarter: 2020Q3

REPORT INFORMATION
  Report Type: Report from Study
  Country: US (occurrence: US)
  Receive Date: 20200805
  Receipt Date: 20200805
  Transmission Date: 20201103
  Serious: Yes (Hospitalization, Other)
  Sender: FDA-Public Use
  Company Number: US-TEVA-2020-US-1811073

PATIENT
  Age: 14 Year
  Sex: Male
  Weight: 119.3 kg

DRUGS (12)
  1. MERCAPTOPURINE. [Suspect]
     Active Substance: MERCAPTOPURINE
     Dosage: 50 MILLIGRAM, DAYS 1?4;
     Route: 048
     Dates: start: 20200701
  2. METHOTREXATE. [Suspect]
     Active Substance: METHOTREXATE
     Route: 042
     Dates: start: 20200701
  3. VINCRISTINE [Suspect]
     Active Substance: VINCRISTINE
     Dosage: 2 MILLIGRAM (DAYS 15, 22,43, 50);
     Route: 042
     Dates: start: 20200701
  4. CYCLOPHOSPHAMIDE. [Suspect]
     Active Substance: CYCLOPHOSPHAMIDE
     Indication: ACUTE LYMPHOCYTIC LEUKAEMIA
     Dosage: 2400 MILLIGRAM (DAYS 1, 29)
     Route: 042
     Dates: start: 20200409
  5. LEUCOVORIN. [Suspect]
     Active Substance: LEUCOVORIN
     Indication: ACUTE LYMPHOCYTIC LEUKAEMIA
     Dosage: 150 MILLIGRAM DAILY; 37.5 MILLIGRAM, Q6H DAYS 3?4
     Route: 065
     Dates: start: 20200703
  6. ASPARAGINASE [Suspect]
     Active Substance: ASPARAGINASE
     Indication: ACUTE LYMPHOCYTIC LEUKAEMIA
     Dosage: 60000 INTERNATIONAL UNIT (DAY 47);
     Route: 030
     Dates: start: 20200608
  7. INCB018424 [Suspect]
     Active Substance: RUXOLITINIB
     Indication: ACUTE LYMPHOCYTIC LEUKAEMIA
     Dosage: 200 MILLIGRAM DAILY; 100 MILLIGRAM, BID (DAYS 1?14, 29?42)
     Route: 048
     Dates: start: 20200409
  8. CYTARABINE. [Suspect]
     Active Substance: CYTARABINE
     Indication: ACUTE LYMPHOCYTIC LEUKAEMIA
     Dosage: 180 MILLIGRAM, (DAYS 1?4,8?11 , 29?32)
     Route: 042
     Dates: start: 20200409
  9. MERCAPTOPURINE. [Suspect]
     Active Substance: MERCAPTOPURINE
     Indication: ACUTE LYMPHOCYTIC LEUKAEMIA
     Dosage: 150 MILLIGRAM (DAYS 1?14,29?42)
     Route: 048
     Dates: start: 20200409
  10. PEGASPARGASE [Suspect]
     Active Substance: PEGASPARGASE
     Indication: ACUTE LYMPHOCYTIC LEUKAEMIA
     Dosage: 300 INTERNATIONAL UNIT (DAY 15)
     Route: 042
     Dates: start: 20200423
  11. METHOTREXATE. [Suspect]
     Active Substance: METHOTREXATE
     Indication: ACUTE LYMPHOCYTIC LEUKAEMIA
     Dosage: 15 MILLIGRAM (DAYS 1, 8,15, 22); INTRATHECAL
     Route: 037
     Dates: start: 20200409
  12. VINCRISTINE [Suspect]
     Active Substance: VINCRISTINE
     Indication: ACUTE LYMPHOCYTIC LEUKAEMIA
     Dosage: 2 MILLIGRAM (DAYS 15, 22,43, 50)
     Route: 042
     Dates: start: 20200423

REACTIONS (2)
  - Drug clearance decreased [Recovered/Resolved]
  - Toxicity to various agents [Recovering/Resolving]
